FAERS Safety Report 7425470-6 (Version None)
Quarter: 2011Q2

REPORT INFORMATION
  Report Type: 
  Country: None (occurrence: None)
  Receive Date: 20110418
  Receipt Date: 20110418
  Transmission Date: 20111010
  Serious: No
  Sender: FDA-Public Use
  Company Number: None

PATIENT
  Sex: Female
  Weight: 126.5536 kg

DRUGS (1)
  1. TUBERSOL [Suspect]
     Indication: MYCOBACTERIUM TUBERCULOSIS COMPLEX TEST
     Dosage: 0.1ML 1/TIME INTRADERMAL
     Route: 023
     Dates: start: 20110406

REACTIONS (5)
  - FLUSHING [None]
  - COLD SWEAT [None]
  - HEART RATE INCREASED [None]
  - BLOOD PRESSURE INCREASED [None]
  - THROAT TIGHTNESS [None]
